FAERS Safety Report 22941813 (Version 7)
Quarter: 2024Q2

REPORT INFORMATION
  Report Type: Other
  Country: SK (occurrence: None)
  Receive Date: 20230914
  Receipt Date: 20240513
  Transmission Date: 20240716
  Serious: Yes (Hospitalization, Other)
  Sender: FDA-Public Use
  Company Number: SK-ROCHE-3417804

PATIENT
  Age: 67 Year
  Sex: Male
  Weight: 97 kg

DRUGS (7)
  1. VABYSMO [Suspect]
     Active Substance: FARICIMAB\FARICIMAB-SVOA
     Indication: Diabetic retinal oedema
     Dosage: MOST RECENT APPLICATION ON 25/AUG/2023
     Route: 050
     Dates: start: 20230825
  2. LEVOFLOXACIN [Concomitant]
     Active Substance: LEVOFLOXACIN
  3. GLICLAZIDE [Concomitant]
     Active Substance: GLICLAZIDE
     Indication: Diabetes mellitus
     Route: 048
     Dates: start: 201710
  4. METFORMIN HYDROCHLORIDE [Concomitant]
     Active Substance: METFORMIN HYDROCHLORIDE
     Indication: Diabetes mellitus
     Route: 048
     Dates: start: 201710
  5. RAMIPRIL [Concomitant]
     Active Substance: RAMIPRIL
     Indication: Hypertension
     Route: 048
     Dates: start: 201710
  6. CO-AMLESSA [Concomitant]
     Indication: Hypertension
     Route: 048
     Dates: start: 20230522
  7. RILMEX [Concomitant]
     Indication: Hypertension
     Route: 048
     Dates: start: 20230522

REACTIONS (7)
  - Vitritis [Unknown]
  - Endophthalmitis [Recovering/Resolving]
  - Diabetic retinopathy [Unknown]
  - Diabetic retinopathy [Unknown]
  - Cyclitis [Unknown]
  - Diabetic retinal oedema [Unknown]
  - Cataract [Unknown]

NARRATIVE: CASE EVENT DATE: 20230904
